FAERS Safety Report 8421543-X (Version None)
Quarter: 2012Q2

REPORT INFORMATION
  Report Type: 
  Country: None (occurrence: None)
  Receive Date: 20120608
  Receipt Date: 20120530
  Transmission Date: 20120825
  Serious: Yes (Hospitalization, Other)
  Sender: FDA-Public Use
  Company Number: US-BAYER-2011-112101

PATIENT
  Age: 34 Year
  Sex: Female
  Weight: 81.633 kg

DRUGS (9)
  1. YAZ [Suspect]
     Indication: CONTRACEPTION
     Dosage: UNK
     Dates: start: 20080618, end: 20091224
  2. CYCLOBENZAPRINE [Concomitant]
     Indication: MUSCLE RELAXANT THERAPY
     Dosage: 5 MG, UNK
     Route: 048
     Dates: start: 20100222
  3. LOVAZA [Concomitant]
     Indication: BLOOD CHOLESTEROL INCREASED
     Dosage: 1 GRAM,UNK
     Route: 048
     Dates: start: 20091204, end: 20110211
  4. PROZAC [Concomitant]
     Dosage: UNK
     Route: 048
     Dates: start: 20091218
  5. PANTOPRAZOLE [Concomitant]
     Indication: GASTRIC DISORDER
     Dosage: 40 MG, UNK
     Route: 048
  6. DILAUDID [Concomitant]
  7. LEVOTHYROXINE SODIUM [Concomitant]
     Indication: HYPOTHYROIDISM
     Dosage: 1 DAILY/50MCG
     Route: 048
     Dates: start: 20090902, end: 20101206
  8. PROMETHAZINE [Concomitant]
     Dosage: 25 MG, UNK
     Dates: start: 20091218
  9. NITROFURANTOIN [Concomitant]
     Dosage: 100 MG, UNK
     Dates: start: 20100111

REACTIONS (19)
  - PROCEDURAL PAIN [None]
  - STRESS [None]
  - ANXIETY [None]
  - POST PROCEDURAL BILE LEAK [None]
  - FEAR [None]
  - SCAR [None]
  - GENERAL PHYSICAL HEALTH DETERIORATION [None]
  - CHOLECYSTITIS CHRONIC [None]
  - WEIGHT INCREASED [None]
  - BACK PAIN [None]
  - POST-TRAUMATIC STRESS DISORDER [None]
  - BILIARY DYSKINESIA [None]
  - PANCREATITIS [None]
  - EMOTIONAL DISTRESS [None]
  - LIVER DISORDER [None]
  - DYSPNOEA [None]
  - PROCEDURAL NAUSEA [None]
  - INJURY [None]
  - PAIN [None]
